FAERS Safety Report 10736290 (Version 1)
Quarter: 2015Q1

REPORT INFORMATION
  Report Type: Spontaneous
  Country: US (occurrence: None)
  Receive Date: 20150122
  Receipt Date: 20150122
  Transmission Date: 20150721
  Serious: No
  Sender: FDA-Public Use
  Company Number: None

PATIENT
  Age: 4 Year
  Sex: Female

DRUGS (1)
  1. POLYETHYLENE GLYCOL [Suspect]
     Active Substance: POLYETHYLENE GLYCOLS
     Indication: CONSTIPATION
     Dosage: 6 WEEKS?8-17G, ONCE DAILY, TAKEN BY MOUTH
     Route: 048

REACTIONS (4)
  - Nervous system disorder [None]
  - Unevaluable event [None]
  - Screaming [None]
  - Crying [None]

NARRATIVE: CASE EVENT DATE: 20141229
